FAERS Safety Report 7065138 (Version 2)
Quarter: 2012Q4

REPORT INFORMATION
  Report Type: 
  Country: US (occurrence: None)
  Receive Date: 20090720
  Receipt Date: 20120912
  Transmission Date: 20130627
  Serious: Yes (Hospitalization, Other)
  Sender: FDA-Public Use
  Company Number: 2009AP002777

PATIENT
  Sex: Male

DRUGS (1)
  1. AMIODARONE HYDROCHLORIDE [Suspect]
     Dosage: 150 MG; IVBOL; 1 MG MIN; IV
     Route: 040

REACTIONS (11)
  - Torsade de pointes [None]
  - Electrocardiogram PR shortened [None]
  - Electrocardiogram T wave abnormal [None]
  - Electrocardiogram delta waves abnormal [None]
  - Ventricular extrasystoles [None]
  - Malaise [None]
  - Pallor [None]
  - Dizziness [None]
  - Atrial fibrillation [None]
  - Chills [None]
  - Accessory cardiac pathway [None]
